FAERS Safety Report 23086191 (Version 1)
Quarter: 2023Q4

REPORT INFORMATION
  Report Type: Report from Study
  Country: US (occurrence: US)
  Receive Date: 20231019
  Receipt Date: 20231019
  Transmission Date: 20240109
  Serious: Yes (Other)
  Sender: FDA-Public Use
  Company Number: US-JAZZ PHARMACEUTICALS-2023-US-017730

PATIENT
  Age: 31 Year
  Sex: Female

DRUGS (7)
  1. XYWAV [Suspect]
     Active Substance: CALCIUM OXYBATE\MAGNESIUM OXYBATE\POTASSIUM OXYBATE\SODIUM OXYBATE
     Indication: Hypersomnia
     Dosage: 2.5 GRAM, QD
  2. XYWAV [Suspect]
     Active Substance: CALCIUM OXYBATE\MAGNESIUM OXYBATE\POTASSIUM OXYBATE\SODIUM OXYBATE
     Dosage: 1 GRAM
  3. XYWAV [Suspect]
     Active Substance: CALCIUM OXYBATE\MAGNESIUM OXYBATE\POTASSIUM OXYBATE\SODIUM OXYBATE
     Dosage: 1.5 GRAM
  4. ESTRACE [Concomitant]
     Active Substance: ESTRADIOL
     Indication: Product used for unknown indication
     Dosage: UNK
     Dates: start: 20230501
  5. ESTRADIOL [Concomitant]
     Active Substance: ESTRADIOL
     Indication: Product used for unknown indication
     Dosage: UNK
     Dates: start: 20230501
  6. OXYCODONE HYDROCHLORIDE [Concomitant]
     Active Substance: OXYCODONE HYDROCHLORIDE
     Indication: Product used for unknown indication
     Dosage: UNK
     Dates: start: 20231002
  7. NORFLEX [Concomitant]
     Active Substance: ORPHENADRINE CITRATE
     Dosage: UNK
     Dates: start: 20231014

REACTIONS (33)
  - Colon cancer [Unknown]
  - Surgery [Unknown]
  - Abdominal pain [Unknown]
  - Abdominal distension [Unknown]
  - Neck injury [Unknown]
  - Spondylitis [Unknown]
  - Throat irritation [Unknown]
  - Brain fog [Unknown]
  - Cough [Unknown]
  - Heart rate abnormal [Unknown]
  - Self-injurious ideation [Unknown]
  - Pre-existing condition improved [Unknown]
  - Oropharyngeal pain [Unknown]
  - Feeling abnormal [Unknown]
  - Migraine [Unknown]
  - Colitis [Unknown]
  - Fatigue [Unknown]
  - Somnolence [Unknown]
  - Weight decreased [Unknown]
  - Drug ineffective [Unknown]
  - Eczema [Unknown]
  - Vomiting [Unknown]
  - Hypoaesthesia [Unknown]
  - Paraesthesia oral [Unknown]
  - Dizziness [Unknown]
  - Dehydration [Unknown]
  - Pyrexia [Unknown]
  - Chills [Unknown]
  - Dysuria [Unknown]
  - Tremor [Unknown]
  - Constipation [Unknown]
  - Intentional product use issue [Unknown]
  - Product dose omission issue [Unknown]

NARRATIVE: CASE EVENT DATE: 20230805
